FAERS Safety Report 6069677-1 (Version None)
Quarter: 2009Q1

REPORT INFORMATION
  Report Type: 
  Country: None (occurrence: None)
  Receive Date: 20090209
  Receipt Date: 20090129
  Transmission Date: 20090719
  Serious: Yes (Hospitalization, Other)
  Sender: FDA-Public Use
  Company Number: US-JNJFOC-20090101218

PATIENT
  Sex: Male
  Weight: 149.69 kg

DRUGS (17)
  1. REMICADE [Suspect]
     Route: 042
  2. REMICADE [Suspect]
     Route: 042
  3. REMICADE [Suspect]
     Indication: RHEUMATOID ARTHRITIS
     Route: 042
  4. CLINORIL [Concomitant]
     Indication: DRUG USE FOR UNKNOWN INDICATION
  5. COUMADIN [Concomitant]
  6. WELCHOL [Concomitant]
  7. METHOTREXATE [Concomitant]
  8. PHENOBARBITAL [Concomitant]
  9. SYNTHROID [Concomitant]
  10. ZOCOR [Concomitant]
  11. DILANTIN [Concomitant]
  12. VYTORIN [Concomitant]
  13. TREXALL [Concomitant]
  14. ATENOLOL [Concomitant]
  15. TRICOR [Concomitant]
  16. FOLIC ACID [Concomitant]
  17. NEXIUM [Concomitant]

REACTIONS (4)
  - ATRIAL FIBRILLATION [None]
  - BLOOD CHOLESTEROL INCREASED [None]
  - BLOOD CREATININE INCREASED [None]
  - DIFFUSE LARGE B-CELL LYMPHOMA [None]
